FAERS Safety Report 13520763 (Version 1)
Quarter: 2017Q2

REPORT INFORMATION
  Report Type: Spontaneous
  Country: US (occurrence: US)
  Receive Date: 20170508
  Receipt Date: 20170508
  Transmission Date: 20170830
  Serious: No
  Sender: FDA-Public Use
  Company Number: US-TEVA-727928ACC

PATIENT
  Age: 7 Year
  Sex: Female
  Weight: 20.43 kg

DRUGS (1)
  1. FAMOTIDINE TABLETS [Suspect]
     Active Substance: FAMOTIDINE
     Indication: GASTROOESOPHAGEAL REFLUX DISEASE
     Dates: start: 201610

REACTIONS (3)
  - Abdominal discomfort [Unknown]
  - Aphthous ulcer [Unknown]
  - Gluten sensitivity [Unknown]

NARRATIVE: CASE EVENT DATE: 2016
